FAERS Safety Report 19169196 (Version 3)
Quarter: 2021Q3

REPORT INFORMATION
  Report Type: Spontaneous
  Country: DE (occurrence: DE)
  Receive Date: 20210422
  Receipt Date: 20210805
  Transmission Date: 20211014
  Serious: No
  Sender: FDA-Public Use
  Company Number: DE-MYLANLABS-2021M1022684

PATIENT

DRUGS (1)
  1. FASTJEKT [Suspect]
     Active Substance: EPINEPHRINE
     Indication: PRODUCT USED FOR UNKNOWN INDICATION
     Dosage: UNK

REACTIONS (1)
  - Product quality issue [None]
